FAERS Safety Report 8808675 (Version 1)
Quarter: 2012Q4

REPORT INFORMATION
  Report Type: 
  Country: FR (occurrence: FR)
  Receive Date: 20120926
  Receipt Date: 20120926
  Transmission Date: 20130627
  Serious: Yes (Hospitalization)
  Sender: FDA-Public Use
  Company Number: PHHY2012FR080762

PATIENT
  Age: 33 Year
  Sex: Female

DRUGS (7)
  1. TASIGNA [Suspect]
     Indication: MYELOPROLIFERATIVE DISORDER
     Dosage: 200 mg, UNK
     Route: 048
     Dates: start: 201012, end: 201108
  2. TASIGNA [Interacting]
     Dates: start: 201110
  3. VALDOXAN [Interacting]
     Dosage: 25 mg, UNK
     Route: 048
     Dates: start: 20120608, end: 20120623
  4. COVERSYL [Concomitant]
  5. LASILIX [Concomitant]
  6. NEXIUM [Concomitant]
  7. ZYLORIC [Concomitant]

REACTIONS (3)
  - Splenic infarction [Recovered/Resolved]
  - Drug interaction [Unknown]
  - Therapeutic response decreased [Unknown]
